FAERS Safety Report 12200405 (Version 1)
Quarter: 2016Q1

REPORT INFORMATION
  Report Type: Spontaneous
  Country: US (occurrence: US)
  Receive Date: 20160322
  Receipt Date: 20160322
  Transmission Date: 20160526
  Serious: No
  Sender: FDA-Public Use
  Company Number: US-SEPTODONT-201502970

PATIENT
  Age: 5 Decade
  Sex: Female

DRUGS (2)
  1. LIDOCAINE HYDROCHLORIDE 2% WITH EPINEPHRINE 1:100,000 INJECTION [Suspect]
     Active Substance: EPINEPHRINE\LIDOCAINE HYDROCHLORIDE
     Indication: LOCAL ANAESTHESIA
     Dosage: 1 CARPULE ADMINISTERED
     Route: 004
     Dates: start: 201505, end: 201505
  2. BENZOCAINE 20% [Concomitant]
     Indication: LOCAL ANAESTHESIA
     Dosage: NO DOSE INFORMATION PROVIDED.
     Route: 061
     Dates: start: 201505, end: 201505

REACTIONS (4)
  - Dizziness [None]
  - Dyspnoea [Recovered/Resolved]
  - Tremor [Recovered/Resolved]
  - Pallor [Recovered/Resolved]

NARRATIVE: CASE EVENT DATE: 201505
